FAERS Safety Report 23692078 (Version 1)
Quarter: 2024Q2

REPORT INFORMATION
  Report Type: Report from Study
  Country: IT (occurrence: IT)
  Receive Date: 20240401
  Receipt Date: 20240401
  Transmission Date: 20240716
  Serious: Yes (Other)
  Sender: FDA-Public Use
  Company Number: None

PATIENT
  Age: 61 Year
  Sex: Male
  Weight: 82 kg

DRUGS (2)
  1. CAPECITABINE [Suspect]
     Active Substance: CAPECITABINE
     Indication: Colon cancer
     Dosage: 3000 MG, Q21D(START OF THERAPY 04/10/2023 - THERAPY FOR 14 DAYS, EVERY 21 DAYS - II CYCLE)
     Route: 048
     Dates: start: 20231025, end: 20231108
  2. OXALIPLATIN [Suspect]
     Active Substance: OXALIPLATIN
     Indication: Colon cancer
     Dosage: 200 MILLIGRAM, Q21D (START OF THERAPY 03/10/2023 - THERAPY EVERY 21 DAYS - II CYCLE)
     Route: 042
     Dates: start: 20231024, end: 20231024

REACTIONS (2)
  - Thrombocytopenia [Recovering/Resolving]
  - Off label use [Recovering/Resolving]

NARRATIVE: CASE EVENT DATE: 20231024
